FAERS Safety Report 5055962-9 (Version None)
Quarter: 2006Q3

REPORT INFORMATION
  Report Type: 
  Country: None (occurrence: None)
  Receive Date: 20060720
  Receipt Date: 20060614
  Transmission Date: 20061208
  Serious: Yes (Death, Hospitalization, Disabling)
  Sender: FDA-Public Use
  Company Number: GB-AVENTIS-200613360EU

PATIENT
  Sex: Female

DRUGS (4)
  1. CLEXANE [Suspect]
     Indication: KNEE ARTHROPLASTY
     Route: 058
     Dates: start: 20060411, end: 20060619
  2. ACETAMINOPHEN [Concomitant]
     Indication: ANALGESIC EFFECT
  3. TRAMADOL HCL [Concomitant]
     Indication: ANALGESIC EFFECT
  4. CELEBREX [Concomitant]
     Indication: ANALGESIC EFFECT

REACTIONS (3)
  - DEEP VEIN THROMBOSIS [None]
  - DRUG DOSE OMISSION [None]
  - PULMONARY EMBOLISM [None]
